FAERS Safety Report 7156050-8 (Version None)
Quarter: 2010Q4

REPORT INFORMATION
  Report Type: 
  Country: None (occurrence: None)
  Receive Date: 20101214
  Receipt Date: 20101207
  Transmission Date: 20110411
  Serious: Yes (Hospitalization)
  Sender: FDA-Public Use
  Company Number: DE-SANOFI-AVENTIS-2010SA074249

PATIENT
  Sex: Female

DRUGS (9)
  1. MULTAQ [Suspect]
     Route: 048
     Dates: end: 20100101
  2. MARCUMAR [Concomitant]
     Route: 048
     Dates: end: 20100101
  3. LISINOPRIL [Concomitant]
  4. ALL OTHER THERAPEUTIC PRODUCTS [Concomitant]
  5. TORASEMIDE [Concomitant]
  6. MAGNESIUM [Concomitant]
  7. BISOPROLOL [Concomitant]
  8. PRAVASTATIN [Concomitant]
  9. PANTOPRAZOLE [Concomitant]

REACTIONS (2)
  - GAMMA-GLUTAMYLTRANSFERASE INCREASED [None]
  - LIVER FUNCTION TEST ABNORMAL [None]
